FAERS Safety Report 23336276 (Version 1)
Quarter: 2023Q4

REPORT INFORMATION
  Report Type: Spontaneous
  Country: TR (occurrence: TR)
  Receive Date: 20231225
  Receipt Date: 20231225
  Transmission Date: 20240109
  Serious: Yes (Other)
  Sender: FDA-Public Use
  Company Number: TR-ABBVIE-5553609

PATIENT
  Age: 28 Year
  Sex: Female

DRUGS (1)
  1. BOTULINUM TOXIN TYPE A [Suspect]
     Active Substance: BOTULINUM TOXIN TYPE A
     Indication: Product used for unknown indication
     Dosage: TIME INTERVAL: AS NECESSARY
     Route: 065

REACTIONS (11)
  - Myelitis transverse [Unknown]
  - Spinal cord disorder [Unknown]
  - Hypoaesthesia [Unknown]
  - Botulism [Unknown]
  - Dysphagia [Unknown]
  - Muscular weakness [Unknown]
  - Eye movement disorder [Recovered/Resolved]
  - Acute disseminated encephalomyelitis [Unknown]
  - Diplopia [Unknown]
  - Eyelid ptosis [Unknown]
  - Facial paresis [Unknown]
